FAERS Safety Report 7293331-1 (Version None)
Quarter: 2011Q1

REPORT INFORMATION
  Report Type: 
  Country: None (occurrence: None)
  Receive Date: 20110210
  Receipt Date: 20110210
  Transmission Date: 20110831
  Serious: Yes (Disabling)
  Sender: FDA-Public Use
  Company Number: None

PATIENT
  Age: 78 Year
  Sex: Male
  Weight: 79.3795 kg

DRUGS (12)
  1. ADVAIR DISCKUS [Concomitant]
  2. ALENDRONATE [Concomitant]
  3. ALBUTEROL [Concomitant]
  4. OMEPRAZOLE [Concomitant]
  5. PREDNISONE [Concomitant]
  6. MONTELUKAST SODIUM [Concomitant]
  7. IPRATROPIUM BROMIDE [Concomitant]
  8. VITAMIN D [Concomitant]
  9. LEVOFLOXACIN [Suspect]
     Indication: PNEUMONIA
     Dosage: 750MG DAILY PO
     Route: 048
     Dates: start: 20110118, end: 20110124
  10. CLOTRIMAZOLE TROUCHES [Concomitant]
  11. TIOTROPIUM [Concomitant]
  12. ALBUTEROL [Concomitant]

REACTIONS (1)
  - TENDON RUPTURE [None]
